FAERS Safety Report 7224262-0 (Version None)
Quarter: 2011Q1

REPORT INFORMATION
  Report Type: 
  Country: None (occurrence: None)
  Receive Date: 20110113
  Receipt Date: 20110105
  Transmission Date: 20110831
  Serious: Yes (Hospitalization)
  Sender: FDA-Public Use
  Company Number: US-ASTELLAS-2011US000047

PATIENT

DRUGS (5)
  1. NORVASC [Concomitant]
     Indication: CARDIOVASCULAR DISORDER
     Dosage: 75 MG, UID/QD
     Route: 048
  2. PROGRAF [Suspect]
     Indication: LIVER TRANSPLANT
     Dosage: 2 MG IN MORNING, 1 MG IN EVENING
     Route: 048
     Dates: start: 20050320
  3. LISINOPRIL [Concomitant]
     Indication: CARDIOVASCULAR DISORDER
     Dosage: 10 MG, UID/QD
     Route: 048
  4. METOPROLOL [Concomitant]
     Indication: HYPERTENSION
     Dosage: 25 MG, BID
     Route: 048
  5. MAGNESIUM OXIDE [Concomitant]
     Indication: MAGNESIUM DEFICIENCY
     Dosage: 500 MG, TID
     Route: 048
     Dates: start: 20050320

REACTIONS (6)
  - ADVERSE EVENT [None]
  - FACIAL PAIN [None]
  - VOMITING [None]
  - DYSARTHRIA [None]
  - LIMB DISCOMFORT [None]
  - HEMIPLEGIA [None]
